FAERS Safety Report 8942995 (Version 2)
Quarter: 2013Q1

REPORT INFORMATION
  Report Type: Spontaneous
  Country: US (occurrence: US)
  Receive Date: 20121204
  Receipt Date: 20130122
  Transmission Date: 20140127
  Serious: Yes (Hospitalization, Other)
  Sender: FDA-Public Use
  Company Number: US-PFIZER INC-2012301673

PATIENT
  Sex: Female

DRUGS (2)
  1. SUTENT [Suspect]
     Dosage: 37.5 MG, UNK
     Route: 048
  2. SUTENT [Suspect]
     Dosage: 25 MG, UNK
     Route: 048

REACTIONS (2)
  - Urinary tract infection [Unknown]
  - Pyrexia [Not Recovered/Not Resolved]
